FAERS Safety Report 4508724-2 (Version None)
Quarter: 2004Q4

REPORT INFORMATION
  Report Type: 
  Country: None (occurrence: None)
  Receive Date: 20041123
  Receipt Date: 20040617
  Transmission Date: 20050328
  Serious: No
  Sender: FDA-Public Use
  Company Number: US-GLAXOSMITHKLINE-A0515162A

PATIENT
  Age: 44 Year
  Sex: Female

DRUGS (15)
  1. WELLBUTRIN SR [Suspect]
     Indication: DEPRESSION
     Dosage: 300MG PER DAY
     Route: 048
  2. WELLBUTRIN XL [Suspect]
     Indication: DEPRESSION
     Dosage: 150MG TWICE PER DAY
     Route: 048
     Dates: end: 20040401
  3. ADVAIR [Concomitant]
  4. ALBUTEROL [Concomitant]
  5. BUSPAR [Concomitant]
  6. THEOPHYLLINE [Concomitant]
  7. FLEXERIL [Concomitant]
  8. KLONOPIN [Concomitant]
  9. LISINOPRIL [Concomitant]
  10. TRAZODONE HCL [Concomitant]
  11. CLARINEX [Concomitant]
  12. ALLEGRA [Concomitant]
  13. BENADRYL [Concomitant]
  14. TAVIST [Concomitant]
  15. ORTHO TRI-CYCLEN [Concomitant]

REACTIONS (4)
  - HYPERTENSION [None]
  - INTERVERTEBRAL DISC PROTRUSION [None]
  - LUNG INFECTION [None]
  - WEIGHT INCREASED [None]
